FAERS Safety Report 7530217-9 (Version None)
Quarter: 2011Q2

REPORT INFORMATION
  Report Type: 
  Country: None (occurrence: None)
  Receive Date: 20110607
  Receipt Date: 20110531
  Transmission Date: 20111010
  Serious: Yes (Disabling, Other)
  Sender: FDA-Public Use
  Company Number: PHHY2011TR47101

PATIENT
  Age: 79 Year
  Sex: Female

DRUGS (2)
  1. DONEPEZIL HCL [Suspect]
     Indication: DEMENTIA ALZHEIMER'S TYPE
     Dosage: 5 MG/DAY
  2. MEMANTINE [Concomitant]
     Indication: DEMENTIA ALZHEIMER'S TYPE

REACTIONS (5)
  - SPEECH DISORDER [None]
  - ALANINE AMINOTRANSFERASE INCREASED [None]
  - TRANSAMINASES INCREASED [None]
  - WALKING DISABILITY [None]
  - ASPARTATE AMINOTRANSFERASE INCREASED [None]
